FAERS Safety Report 11211393 (Version 1)
Quarter: 2015Q2

REPORT INFORMATION
  Report Type: Spontaneous
  Country: CZ (occurrence: CZ)
  Receive Date: 20150623
  Receipt Date: 20150623
  Transmission Date: 20150821
  Serious: Yes (Death, Hospitalization)
  Sender: FDA-Public Use
  Company Number: CZ-JNJFOC-20150615019

PATIENT
  Age: 35 Year
  Sex: Male

DRUGS (2)
  1. PARACETAMOL [Suspect]
     Active Substance: ACETAMINOPHEN
     Route: 065
  2. PARACETAMOL [Suspect]
     Active Substance: ACETAMINOPHEN
     Indication: TOOTHACHE
     Dosage: 7 DAYS.
     Route: 065

REACTIONS (5)
  - Overdose [Fatal]
  - Off label use [Unknown]
  - Hepatorenal failure [Fatal]
  - Multi-organ failure [Fatal]
  - Metabolic acidosis [Fatal]
